FAERS Safety Report 13853753 (Version 1)
Quarter: 2017Q3

REPORT INFORMATION
  Report Type: Spontaneous
  Country: DK (occurrence: DK)
  Receive Date: 20170810
  Receipt Date: 20170810
  Transmission Date: 20171127
  Serious: Yes (Other)
  Sender: FDA-Public Use
  Company Number: DK-AMGEN-DNKSP2017120252

PATIENT
  Age: 70 Year
  Sex: Male

DRUGS (1)
  1. CORLENTOR [Suspect]
     Active Substance: IVABRADINE HYDROCHLORIDE
     Indication: CARDIAC FAILURE
     Dosage: 5 MG, BID
     Route: 048

REACTIONS (2)
  - Dizziness [Unknown]
  - Balance disorder [Unknown]

NARRATIVE: CASE EVENT DATE: 2017
